FAERS Safety Report 5167592-9 (Version None)
Quarter: 2006Q4

REPORT INFORMATION
  Report Type: 
  Country: None (occurrence: None)
  Receive Date: 20060918
  Receipt Date: 20060714
  Transmission Date: 20070319
  Serious: Yes (Other)
  Sender: FDA-Public Use
  Company Number: US-JNJFOC-20060703730

PATIENT
  Age: 53 Year
  Sex: Female
  Weight: 72.5755 kg

DRUGS (4)
  1. TOPAMAX [Suspect]
     Indication: WEIGHT CONTROL
     Dosage: 400 MG, 3 IN 1 DAY, ORAL
     Route: 048
     Dates: start: 20050601
  2. WELLBUTRIN [Concomitant]
  3. PREVACID [Concomitant]
  4. DYSACLONE (ALL OTHER THERAPEUTIC PRODUCTS) [Concomitant]

REACTIONS (1)
  - WEIGHT DECREASED [None]
